FAERS Safety Report 14355795 (Version 1)
Quarter: 2018Q1

REPORT INFORMATION
  Report Type: Spontaneous
  Country: US (occurrence: US)
  Receive Date: 20180104
  Receipt Date: 20180104
  Transmission Date: 20180509
  Serious: No
  Sender: FDA-Public Use
  Company Number: None

PATIENT
  Age: 65 Year
  Sex: Female
  Weight: 112.5 kg

DRUGS (1)
  1. METHYLPREDNISOLONE DOSEPK [Suspect]
     Active Substance: METHYLPREDNISOLONE
     Indication: RASH
     Dosage: QUANTITY:2 TABLET(S);OTHER FREQUENCY:VARIES;?
     Route: 048

REACTIONS (1)
  - Product use complaint [None]

NARRATIVE: CASE EVENT DATE: 20180103
